FAERS Safety Report 9442797 (Version 1)
Quarter: 2013Q3

REPORT INFORMATION
  Report Type: Spontaneous
  Country: US (occurrence: US)
  Receive Date: 20130806
  Receipt Date: 20130806
  Transmission Date: 20140515
  Serious: Yes (Other)
  Sender: FDA-Public Use
  Company Number: US-ABBOTT-12P-163-0990489-00

PATIENT
  Age: 23 Year
  Sex: Male
  Weight: 90.8 kg

DRUGS (1)
  1. DEPAKOTE ER [Suspect]
     Indication: CONVULSION
     Dates: start: 2001

REACTIONS (2)
  - Convulsion [Unknown]
  - Convulsion [Recovered/Resolved]
